FAERS Safety Report 8802982 (Version 1)
Quarter: 2012Q4

REPORT INFORMATION
  Report Type: 
  Country: IE (occurrence: IE)
  Receive Date: 20120924
  Receipt Date: 20120924
  Transmission Date: 20130627
  Serious: Yes (Other)
  Sender: FDA-Public Use
  Company Number: IE-PFIZER INC-2012230572

PATIENT

DRUGS (2)
  1. DETRUSITOL [Suspect]
     Dosage: UNK
  2. EFEXOR XL [Suspect]

REACTIONS (1)
  - Dysphagia [Unknown]
